FAERS Safety Report 17023767 (Version 1)
Quarter: 2019Q4

REPORT INFORMATION
  Report Type: Spontaneous
  Country: IT (occurrence: IT)
  Receive Date: 20191113
  Receipt Date: 20191113
  Transmission Date: 20200122
  Serious: Yes (Other)
  Sender: FDA-Public Use
  Company Number: IT-ROCHE-2462815

PATIENT
  Sex: Male

DRUGS (4)
  1. OXALIPLATIN. [Concomitant]
     Active Substance: OXALIPLATIN
     Indication: ADENOCARCINOMA GASTRIC
     Dosage: ADJUVANT CHEMOTHERAPY WITH CAPECITABINE (1700 MG/MQ G2-15) AND OXALIPLATIN (100 MG/MQ G1) EVERY 21 D
     Route: 065
  2. CAPECITABINE. [Suspect]
     Active Substance: CAPECITABINE
     Indication: METASTASES TO LYMPH NODES
  3. OXALIPLATIN. [Concomitant]
     Active Substance: OXALIPLATIN
     Indication: METASTASES TO LYMPH NODES
  4. CAPECITABINE. [Suspect]
     Active Substance: CAPECITABINE
     Indication: ADENOCARCINOMA GASTRIC
     Dosage: ADJUVANT CHEMOTHERAPY WITH CAPECITABINE (1700 MG/MQ G2-15) AND OXALIPLATIN (100 MG/MQ G1) EVERY 21 D
     Route: 048

REACTIONS (2)
  - Malignant melanoma [Unknown]
  - Melanocytic naevus [Unknown]
